FAERS Safety Report 7927072-1 (Version None)
Quarter: 2011Q4

REPORT INFORMATION
  Report Type: 
  Country: None (occurrence: None)
  Receive Date: 20111118
  Receipt Date: 20111107
  Transmission Date: 20120403
  Serious: Yes (Other)
  Sender: FDA-Public Use
  Company Number: JP-NAPPMUNDI-MAG-2011-0001783

PATIENT
  Sex: Male

DRUGS (18)
  1. LOXONIN [Concomitant]
     Indication: CANCER PAIN
     Dosage: UNK
     Dates: end: 20110615
  2. PROCHLORPERAZINE [Concomitant]
     Indication: PROPHYLAXIS
     Dosage: UNK
     Route: 048
     Dates: end: 20110702
  3. SPIRONOLACTONE [Concomitant]
     Indication: GASTRIC CANCER
     Dosage: UNK
     Dates: start: 20110614, end: 20110615
  4. OXYCODONE HCL [Suspect]
     Indication: CANCER PAIN
     Dosage: 10 MG, DAILY
     Dates: start: 20110614, end: 20110704
  5. GASTER                             /00706001/ [Concomitant]
     Indication: PROPHYLAXIS
     Dosage: UNK
     Dates: end: 20110615
  6. CEFTRIAXONE SODIUM [Concomitant]
     Dosage: UNK
     Dates: end: 20110614
  7. NAIXAN                             /00256202/ [Concomitant]
     Indication: CANCER PAIN
     Dosage: UNK
     Dates: start: 20110616
  8. RABEPRAZOLE SODIUM [Concomitant]
     Indication: PROPHYLAXIS
     Dosage: UNK
     Dates: start: 20110616
  9. FUROSEMIDE [Concomitant]
     Indication: GASTRIC CANCER
     Dosage: UNK
     Route: 048
     Dates: start: 20110614, end: 20110615
  10. ONON [Concomitant]
     Dosage: UNK
     Route: 048
     Dates: end: 20110702
  11. HOKUNALIN                          /00654902/ [Concomitant]
     Dosage: UNK
  12. OXYCODONE HCL [Suspect]
     Indication: CANCER PAIN
     Dosage: 40 MG, DAILY
     Route: 048
     Dates: start: 20110614, end: 20110704
  13. FERRO-GRADUMET                     /00023503/ [Concomitant]
     Indication: GASTRIC CANCER
     Dosage: UNK
     Route: 048
     Dates: end: 20110702
  14. ZOSYN [Concomitant]
     Dosage: UNK
     Dates: start: 20110615, end: 20110620
  15. MAGNESIUM SULFATE [Concomitant]
     Indication: PROPHYLAXIS
     Dosage: UNK
  16. THEO-DUR [Concomitant]
     Dosage: UNK
     Route: 048
     Dates: end: 20110702
  17. MUCODYNE [Concomitant]
     Dosage: UNK
     Route: 048
     Dates: end: 20110702
  18. ZOLPIDEM [Suspect]
     Route: 048

REACTIONS (3)
  - CONTUSION [None]
  - FALL [None]
  - DELIRIUM [None]
